FAERS Safety Report 9709964 (Version 1)
Quarter: 2013Q4

REPORT INFORMATION
  Report Type: Spontaneous
  Country: JP (occurrence: JP)
  Receive Date: 20131126
  Receipt Date: 20131126
  Transmission Date: 20140711
  Serious: Yes (Hospitalization)
  Sender: FDA-Public Use
  Company Number: JP-B.I. PHARMACEUTICALS,INC./RIDGEFIELD-2013-BI-38850YA

PATIENT
  Sex: Male

DRUGS (3)
  1. TAMSULOSIN [Suspect]
     Dosage: 0.2 MG
     Route: 048
     Dates: start: 20131107
  2. VESICARE [Suspect]
     Dosage: 5 MG
     Route: 048
     Dates: start: 20131107
  3. CEFAZOLIN [Suspect]
     Dosage: FORMULATION: INJECTION
     Dates: start: 20131114

REACTIONS (4)
  - Road traffic accident [Unknown]
  - Fracture [Unknown]
  - Flushing [Unknown]
  - Flushing [Unknown]
